FAERS Safety Report 23602044 (Version 4)
Quarter: 2025Q1

REPORT INFORMATION
  Report Type: Spontaneous
  Country: US (occurrence: US)
  Receive Date: 20240306
  Receipt Date: 20250301
  Transmission Date: 20250409
  Serious: No
  Sender: SANOFI AVENTIS
  Company Number: US-SANOFI-01961267

PATIENT
  Age: 45 Year
  Sex: Male
  Weight: 84.37 kg

DRUGS (6)
  1. DUPIXENT [Suspect]
     Active Substance: DUPILUMAB
     Indication: Asthma
     Dosage: 300 MG, QW
     Route: 058
     Dates: start: 202401
  2. DUPIXENT [Suspect]
     Active Substance: DUPILUMAB
     Indication: Eosinophilic oesophagitis
  3. DUPIXENT [Suspect]
     Active Substance: DUPILUMAB
     Indication: Hypersensitivity
  4. FINASTERIDE [Concomitant]
     Active Substance: FINASTERIDE
  5. SPIRONOLACTONE [Concomitant]
     Active Substance: SPIRONOLACTONE
  6. ESTROGENS [Concomitant]
     Active Substance: ESTROGENS

REACTIONS (14)
  - Fear of injection [Unknown]
  - Oesophageal pain [Recovering/Resolving]
  - Chest discomfort [Recovering/Resolving]
  - Odynophagia [Recovering/Resolving]
  - Chest pain [Recovering/Resolving]
  - Fatigue [Not Recovered/Not Resolved]
  - Injection site pain [Unknown]
  - Arthralgia [Recovering/Resolving]
  - Eosinophil count increased [Unknown]
  - Inflammation [Recovering/Resolving]
  - Product use in unapproved indication [Unknown]
  - Accidental exposure to product [Unknown]
  - Exposure via skin contact [Unknown]
  - Intentional product misuse [Unknown]
